FAERS Safety Report 8066965-4 (Version None)
Quarter: 2012Q1

REPORT INFORMATION
  Report Type: 
  Country: None (occurrence: None)
  Receive Date: 20120124
  Receipt Date: 20120113
  Transmission Date: 20120608
  Serious: Yes (Hospitalization, Disabling)
  Sender: FDA-Public Use
  Company Number: US-MERCK-1107USA00015

PATIENT
  Age: 61 Year
  Sex: Female

DRUGS (18)
  1. XANAX [Concomitant]
     Indication: ANXIETY
     Route: 065
     Dates: start: 19951001
  2. FOSAMAX [Suspect]
     Route: 048
     Dates: start: 20070315, end: 20070401
  3. CLONAZEPAM [Concomitant]
     Indication: ANXIETY
     Route: 065
     Dates: start: 20011101
  4. CITALOPRAM [Concomitant]
     Indication: DEPRESSION
     Route: 065
     Dates: start: 20060801, end: 20090701
  5. PREVACID [Concomitant]
     Indication: GASTROOESOPHAGEAL REFLUX DISEASE
     Route: 065
     Dates: start: 20021201, end: 20100101
  6. FOSAMAX [Suspect]
     Route: 048
     Dates: start: 20080214, end: 20090101
  7. FOSAMAX [Suspect]
     Route: 048
     Dates: start: 20080214, end: 20090101
  8. EVISTA [Concomitant]
     Indication: OSTEOPOROSIS PROPHYLAXIS
     Route: 065
     Dates: start: 20020501, end: 20061201
  9. ATENOLOL [Concomitant]
     Indication: BLOOD PRESSURE
     Route: 065
     Dates: start: 20060801
  10. FOSAMAX [Suspect]
     Indication: OSTEOPOROSIS
     Route: 048
     Dates: start: 20010821, end: 20020501
  11. FOSAMAX [Suspect]
     Indication: OSTEOPENIA
     Route: 048
     Dates: start: 20010821, end: 20020501
  12. EFFEXOR [Concomitant]
     Indication: DEPRESSION
     Route: 065
     Dates: start: 20020301, end: 20061201
  13. PRILOSEC [Concomitant]
     Indication: GASTROOESOPHAGEAL REFLUX DISEASE
     Route: 048
     Dates: start: 20060801, end: 20100401
  14. EFFEXOR [Concomitant]
     Indication: ANXIETY
     Route: 065
     Dates: start: 20020301, end: 20061201
  15. CLARITIN [Concomitant]
     Indication: SEASONAL ALLERGY
     Route: 048
     Dates: start: 20010701, end: 20021201
  16. NORVASC [Concomitant]
     Indication: BLOOD PRESSURE
     Route: 065
     Dates: start: 19960601, end: 20090301
  17. ZANTAC [Concomitant]
     Indication: GASTROOESOPHAGEAL REFLUX DISEASE
     Route: 065
     Dates: start: 19980201, end: 20011101
  18. FOSAMAX [Suspect]
     Route: 048
     Dates: start: 20070315, end: 20070401

REACTIONS (42)
  - TYPE 2 DIABETES MELLITUS [None]
  - ORAL PAIN [None]
  - HEPATIC STEATOSIS [None]
  - OSTEOMYELITIS [None]
  - BACTERIAL SEPSIS [None]
  - ASTHMA [None]
  - MITRAL VALVE INCOMPETENCE [None]
  - URINARY TRACT INFECTION [None]
  - CEREBRAL PALSY [None]
  - MUSCLE SPASMS [None]
  - INCISION SITE INFECTION [None]
  - TOOTHACHE [None]
  - CHOLECYSTITIS [None]
  - TOOTH ABSCESS [None]
  - ARRHYTHMIA [None]
  - LUNG DISORDER [None]
  - PAPILLOMA [None]
  - DIVERTICULUM [None]
  - JAW FRACTURE [None]
  - ORAL CAVITY FISTULA [None]
  - SEPSIS [None]
  - HAEMORRHOIDS [None]
  - ORAL DISORDER [None]
  - ATROPHIC VULVOVAGINITIS [None]
  - ORAL TORUS [None]
  - DIARRHOEA [None]
  - DEPRESSION [None]
  - BUNDLE BRANCH BLOCK LEFT [None]
  - ORAL INFECTION [None]
  - IMPAIRED HEALING [None]
  - TOOTH FRACTURE [None]
  - TOOTH DISORDER [None]
  - COLONIC POLYP [None]
  - EJECTION FRACTION DECREASED [None]
  - TREMOR [None]
  - PAIN IN JAW [None]
  - CHEST PAIN [None]
  - OSTEONECROSIS OF JAW [None]
  - DRUG HYPERSENSITIVITY [None]
  - ABDOMINAL PAIN [None]
  - ORAL HERPES [None]
  - VOMITING [None]
